FAERS Safety Report 5587407-4 (Version None)
Quarter: 2007Q4

REPORT INFORMATION
  Report Type: 
  Country: None (occurrence: None)
  Receive Date: 20071207
  Receipt Date: 20070801
  Transmission Date: 20080405
  Serious: Yes (Other)
  Sender: FDA-Public Use
  Company Number: 2007063432

PATIENT
  Sex: Male

DRUGS (3)
  1. VIAGRA [Suspect]
  2. ACETYLSALICYLIC ACID SRT [Concomitant]
  3. NYQUIL (DEXTROMETHORPHAN HYDROBROMIDE, DOXYLAMINE SUCCINATE, EPHEDRINE [Concomitant]

REACTIONS (1)
  - ERECTION INCREASED [None]
